FAERS Safety Report 13252171 (Version 1)
Quarter: 2017Q1

REPORT INFORMATION
  Report Type: Spontaneous
  Country: FR (occurrence: FR)
  Receive Date: 20170220
  Receipt Date: 20170220
  Transmission Date: 20170428
  Serious: Yes (Other)
  Sender: FDA-Public Use
  Company Number: FR-GLAXOSMITHKLINE-FR2017GSK012974

PATIENT
  Age: 14 Year
  Sex: Male

DRUGS (1)
  1. VENTOLINE [Suspect]
     Active Substance: ALBUTEROL
     Indication: PRODUCT USED FOR UNKNOWN INDICATION
     Dosage: 100 UNK, SINGLE
     Route: 003
     Dates: start: 20170127, end: 20170127

REACTIONS (5)
  - Chemical burn of skin [Recovered/Resolved with Sequelae]
  - Skin discolouration [Recovered/Resolved]
  - Intentional product use issue [Unknown]
  - Skin exfoliation [Recovered/Resolved]
  - Pain [Recovered/Resolved]

NARRATIVE: CASE EVENT DATE: 2017
